FAERS Safety Report 7622750-6 (Version None)
Quarter: 2011Q3

REPORT INFORMATION
  Report Type: 
  Country: None (occurrence: None)
  Receive Date: 20110719
  Receipt Date: 20110719
  Transmission Date: 20111222
  Serious: No
  Sender: FDA-Public Use
  Company Number: None

PATIENT
  Sex: Female
  Weight: 72.5755 kg

DRUGS (1)
  1. NUBAIN [Suspect]

REACTIONS (4)
  - CONTUSION [None]
  - HEADACHE [None]
  - NAUSEA [None]
  - VOMITING [None]
